FAERS Safety Report 25784666 (Version 1)
Quarter: 2025Q3

REPORT INFORMATION
  Report Type: Report from Study
  Country: GB (occurrence: GB)
  Receive Date: 20250910
  Receipt Date: 20250910
  Transmission Date: 20251020
  Serious: Yes (Hospitalization)
  Sender: BAXTER
  Company Number: GB-BAXTER-2025BAX020783

PATIENT
  Age: 53 Year
  Sex: Female

DRUGS (13)
  1. WATER FOR INJECTION [Suspect]
     Active Substance: WATER
     Route: 042
     Dates: start: 20250902, end: 20250903
  2. CERNEVIT [Suspect]
     Active Substance: VITAMINS
     Route: 042
     Dates: start: 20250902, end: 20250903
  3. DEXTROSE [Suspect]
     Active Substance: DEXTROSE MONOHYDRATE
     Route: 042
     Dates: start: 20250902, end: 20250903
  4. SYNTHAMIN [Suspect]
     Active Substance: AMINO ACIDS
     Route: 042
     Dates: start: 20250902, end: 20250903
  5. IRON\MINERALS\POTASSIUM IOD\SODIUM FLUORIDE\SODIUM MOLYBDATE\SODIUM SE [Suspect]
     Active Substance: IRON\MINERALS\POTASSIUM IOD\SODIUM FLUORIDE\SODIUM MOLYBDATE\SODIUM SELENITE\ZINC
     Route: 042
     Dates: start: 20250902, end: 20250903
  6. UNSPECIFIED INGREDIENT [Suspect]
     Active Substance: UNSPECIFIED INGREDIENT
     Route: 065
  7. CALCIUM CHLORIDE [Suspect]
     Active Substance: CALCIUM CHLORIDE
     Route: 042
     Dates: start: 20250902, end: 20250903
  8. MAGNESIUM SULFATE [Suspect]
     Active Substance: MAGNESIUM SULFATE
     Route: 042
     Dates: start: 20250902, end: 20250903
  9. POTASSIUM CHLORIDE [Suspect]
     Active Substance: POTASSIUM CHLORIDE
     Route: 042
     Dates: start: 20250902, end: 20250903
  10. SODIUM CHLORIDE [Suspect]
     Active Substance: SODIUM CHLORIDE
     Route: 042
     Dates: start: 20250902, end: 20250903
  11. SODIUM GLYCEROPHOSPHATE [Suspect]
     Active Substance: SODIUM GLYCEROPHOSPHATE
     Route: 042
     Dates: start: 20250902, end: 20250903
  12. WATER [Suspect]
     Active Substance: WATER
     Route: 042
     Dates: start: 20250902, end: 20250903
  13. SMOFLIPID [Suspect]
     Active Substance: FISH OIL\MEDIUM-CHAIN TRIGLYCERIDES\OLIVE OIL\SOYBEAN OIL
     Route: 042
     Dates: start: 20250902, end: 20250903

REACTIONS (5)
  - Malaise [Unknown]
  - Somnolence [Unknown]
  - Confusional state [Unknown]
  - Pyrexia [Unknown]
  - Rash erythematous [Unknown]

NARRATIVE: CASE EVENT DATE: 20250903
